FAERS Safety Report 20928968 (Version 1)
Quarter: 2022Q2

REPORT INFORMATION
  Report Type: Spontaneous
  Country: DE (occurrence: DE)
  Receive Date: 20220608
  Receipt Date: 20220608
  Transmission Date: 20220720
  Serious: Yes (Other)
  Sender: FDA-Public Use
  Company Number: DE-ENDO PHARMACEUTICALS INC-2022-003514

PATIENT
  Age: 33 Year

DRUGS (2)
  1. AVEED [Suspect]
     Active Substance: TESTOSTERONE UNDECANOATE
     Indication: Transgender hormonal therapy
     Dosage: UNK UNKNOWN, UNKNOWN
     Route: 065
     Dates: start: 202006
  2. AVEED [Suspect]
     Active Substance: TESTOSTERONE UNDECANOATE
     Dosage: 1 DF, SINGLE (LAST ADMINISTRATION)
     Route: 065
     Dates: start: 20220126, end: 20220126

REACTIONS (2)
  - Carotid artery thrombosis [Unknown]
  - Cerebral infarction [Unknown]

NARRATIVE: CASE EVENT DATE: 20220129
